FAERS Safety Report 5975572-6 (Version None)
Quarter: 2008Q4

REPORT INFORMATION
  Report Type: 
  Country: None (occurrence: None)
  Receive Date: 20081202
  Receipt Date: 20081202
  Transmission Date: 20090506
  Serious: No
  Sender: FDA-Public Use
  Company Number: AU-JNJFOC-20080706525

PATIENT
  Age: 92 Year
  Sex: Female
  Weight: 34 kg

DRUGS (8)
  1. DURAGESIC-100 [Suspect]
     Indication: PAIN
     Route: 062
  2. LIPITOR [Concomitant]
     Indication: BLOOD CHOLESTEROL
  3. OMEPRAZOLE [Concomitant]
     Indication: GASTROOESOPHAGEAL REFLUX DISEASE
  4. RAMIPRIL [Concomitant]
     Indication: HYPERTENSION
  5. TICLOPIDINE HCL [Concomitant]
     Indication: OBESITY
  6. OXYCARDIN [Concomitant]
     Indication: PAIN
  7. OXYCONTIN [Concomitant]
  8. ACETAMINOPHEN [Concomitant]

REACTIONS (9)
  - DIZZINESS [None]
  - DRUG PRESCRIBING ERROR [None]
  - EMOTIONAL DISORDER [None]
  - MENTAL IMPAIRMENT [None]
  - NAUSEA [None]
  - OVERDOSE [None]
  - PALPITATIONS [None]
  - PRURITUS [None]
  - SYNCOPE [None]
